FAERS Safety Report 8560951-3 (Version None)
Quarter: 2012Q3

REPORT INFORMATION
  Report Type: 
  Country: None (occurrence: None)
  Receive Date: 20120802
  Receipt Date: 20120725
  Transmission Date: 20120928
  Serious: Yes (Hospitalization)
  Sender: FDA-Public Use
  Company Number: US-ELI_LILLY_AND_COMPANY-US201105001217

PATIENT
  Sex: Female

DRUGS (3)
  1. FORTEO [Suspect]
     Dosage: UNK, QD
  2. FORTEO [Suspect]
     Indication: OSTEOPOROSIS
     Dosage: 20 UG, QD
     Dates: start: 20101119
  3. PROZAC [Concomitant]
     Dosage: UNK, UNKNOWN

REACTIONS (4)
  - DYSPNOEA [None]
  - INJECTION SITE PAIN [None]
  - BLOOD POTASSIUM DECREASED [None]
  - HYPOXIA [None]
